FAERS Safety Report 5701878-1 (Version None)
Quarter: 2008Q2

REPORT INFORMATION
  Report Type: 
  Country: None (occurrence: None)
  Receive Date: 20080411
  Receipt Date: 20080407
  Transmission Date: 20081010
  Serious: Yes (Life-Threatening, Hospitalization)
  Sender: FDA-Public Use
  Company Number: JP-BRISTOL-MYERS SQUIBB COMPANY-13888383

PATIENT
  Age: 60 Year
  Sex: Female

DRUGS (8)
  1. TAXOL [Suspect]
     Indication: MALIGNANT MESENTERIC NEOPLASM
     Route: 041
     Dates: start: 20070811, end: 20070811
  2. TAXOL [Suspect]
     Indication: PSEUDOMYXOMA PERITONEI
     Route: 041
     Dates: start: 20070811, end: 20070811
  3. VEEN-F [Concomitant]
     Route: 041
     Dates: end: 20070811
  4. THERARUBICIN [Concomitant]
     Route: 041
     Dates: end: 20070811
  5. DECADRON [Concomitant]
     Route: 041
     Dates: start: 20070811, end: 20070811
  6. ZANTAC [Concomitant]
     Route: 041
     Dates: start: 20070811, end: 20070811
  7. VENA [Concomitant]
     Route: 048
     Dates: start: 20070811, end: 20070811
  8. SHAKUYAKU-KANZO-TO [Concomitant]
     Route: 048

REACTIONS (1)
  - ANAPHYLACTIC SHOCK [None]
